FAERS Safety Report 23882816 (Version 2)
Quarter: 2025Q4

REPORT INFORMATION
  Report Type: Spontaneous
  Country: CA (occurrence: CA)
  Receive Date: 20240522
  Receipt Date: 20251216
  Transmission Date: 20260118
  Serious: Yes (Hospitalization, Other)
  Sender: CHEPLAPHARM
  Company Number: CA-AstraZeneca-2023A212125

PATIENT
  Age: 43 Year
  Sex: Male

DRUGS (18)
  1. QUETIAPINE [Suspect]
     Active Substance: QUETIAPINE
     Indication: Depression
     Route: 048
  2. QUETIAPINE [Suspect]
     Active Substance: QUETIAPINE
     Indication: Bipolar disorder
     Route: 048
  3. CLONAZEPAM [Suspect]
     Active Substance: CLONAZEPAM
     Indication: Bipolar disorder
  4. CLONAZEPAM [Suspect]
     Active Substance: CLONAZEPAM
     Indication: Depression
  5. BENZTROPINE [Suspect]
     Active Substance: BENZTROPINE
     Indication: Bipolar disorder
  6. BENZTROPINE [Suspect]
     Active Substance: BENZTROPINE
     Indication: Depression
  7. REXULTI [Suspect]
     Active Substance: BREXPIPRAZOLE
     Indication: Bipolar disorder
  8. REXULTI [Suspect]
     Active Substance: BREXPIPRAZOLE
     Indication: Depression
  9. KETAMINE [Suspect]
     Active Substance: KETAMINE
     Indication: Depression
     Route: 042
  10. KETAMINE [Suspect]
     Active Substance: KETAMINE
     Indication: Bipolar disorder
     Route: 042
  11. KETAMINE [Suspect]
     Active Substance: KETAMINE
     Indication: Depression
  12. KETAMINE [Suspect]
     Active Substance: KETAMINE
     Indication: Bipolar disorder
  13. FETZIMA [Suspect]
     Active Substance: LEVOMILNACIPRAN HYDROCHLORIDE
     Indication: Depression
  14. FETZIMA [Suspect]
     Active Substance: LEVOMILNACIPRAN HYDROCHLORIDE
     Indication: Bipolar disorder
  15. VORTIOXETINE [Suspect]
     Active Substance: VORTIOXETINE
     Indication: Bipolar disorder
  16. VORTIOXETINE [Suspect]
     Active Substance: VORTIOXETINE
     Indication: Depression
  17. ZOPICLONE [Suspect]
     Active Substance: ZOPICLONE
     Indication: Depression
  18. ZOPICLONE [Suspect]
     Active Substance: ZOPICLONE
     Indication: Bipolar disorder

REACTIONS (3)
  - Dissociation [Recovered/Resolved]
  - Drug ineffective [Unknown]
  - Off label use [Unknown]
